FAERS Safety Report 7575091-X (Version None)
Quarter: 2011Q2

REPORT INFORMATION
  Report Type: 
  Country: None (occurrence: None)
  Receive Date: 20110627
  Receipt Date: 20110623
  Transmission Date: 20111010
  Serious: Yes (Other)
  Sender: FDA-Public Use
  Company Number: DE-PFIZER INC-2011139547

PATIENT
  Age: 26 Year
  Sex: Male

DRUGS (1)
  1. VENLAFAXINE [Suspect]
     Dosage: 150 MG, FREQUENCY UNKNOWN
     Dates: start: 20110301

REACTIONS (2)
  - HAND FRACTURE [None]
  - INTENTIONAL SELF-INJURY [None]
